FAERS Safety Report 6919017-8 (Version None)
Quarter: 2010Q3

REPORT INFORMATION
  Report Type: 
  Country: None (occurrence: None)
  Receive Date: 20100726
  Receipt Date: 20090701
  Transmission Date: 20110219
  Serious: No
  Sender: FDA-Public Use
  Company Number: 2009-00269

PATIENT
  Age: 57 Year
  Sex: Male
  Weight: 99.7913 kg

DRUGS (2)
  1. ZICAM COLD REMEDY NASAL GEL [Suspect]
     Dosage: SPORADIC USE, ON/OFF YRS
  2. ZICAM COLD REMEDY NASAL GEL [Suspect]
     Dosage: SPORADIC USE, ON/OFF YRS

REACTIONS (1)
  - ANOSMIA [None]
